FAERS Safety Report 13079196 (Version 2)
Quarter: 2017Q2

REPORT INFORMATION
  Report Type: Report from Study
  Country: CA (occurrence: CA)
  Receive Date: 20170103
  Receipt Date: 20170502
  Transmission Date: 20170830
  Serious: Yes (Other)
  Sender: FDA-Public Use
  Company Number: CA-AMGEN-CANSL2016174080

PATIENT
  Age: 80 Year
  Sex: Female

DRUGS (12)
  1. VITAMIN D [Concomitant]
     Active Substance: CHOLECALCIFEROL
     Indication: VITAMIN D DECREASED
     Dosage: 2000 IU, QMO
     Route: 030
  2. PROLIA [Suspect]
     Active Substance: DENOSUMAB
     Indication: PRODUCT USED FOR UNKNOWN INDICATION
     Dosage: UNK
     Route: 065
     Dates: start: 20120419
  3. SYNTHROID [Concomitant]
     Active Substance: LEVOTHYROXINE SODIUM
  4. TECTA [Concomitant]
     Active Substance: PANTOPRAZOLE MAGNESIUM
  5. TYLENOL [Concomitant]
     Active Substance: ACETAMINOPHEN
  6. ADALAT [Concomitant]
     Active Substance: NIFEDIPINE
  7. METOPROLOL. [Concomitant]
     Active Substance: METOPROLOL
  8. SERTRALINE [Concomitant]
     Active Substance: SERTRALINE HYDROCHLORIDE
  9. LIPITOR [Concomitant]
     Active Substance: ATORVASTATIN CALCIUM
  10. SYMBICORT [Concomitant]
     Active Substance: BUDESONIDE\FORMOTEROL FUMARATE DIHYDRATE
  11. COVERSYL [Concomitant]
     Active Substance: PERINDOPRIL
  12. ASA [Concomitant]
     Active Substance: ASPIRIN

REACTIONS (7)
  - Vitamin D decreased [Not Recovered/Not Resolved]
  - Bone density decreased [Unknown]
  - Nephrolithiasis [Unknown]
  - Gait disturbance [Not Recovered/Not Resolved]
  - Abdominal hernia [Unknown]
  - Hernia [Unknown]
  - Body height decreased [Unknown]

NARRATIVE: CASE EVENT DATE: 2015
